FAERS Safety Report 6266255-6 (Version None)
Quarter: 2009Q3

REPORT INFORMATION
  Report Type: 
  Country: None (occurrence: None)
  Receive Date: 20090713
  Receipt Date: 20090609
  Transmission Date: 20100115
  Serious: Yes (Other)
  Sender: FDA-Public Use
  Company Number: GB-AVENTIS-200916025GDDC

PATIENT
  Age: 61 Year
  Sex: Female
  Weight: 50 kg

DRUGS (7)
  1. ARAVA [Suspect]
     Indication: RHEUMATOID ARTHRITIS
     Route: 048
     Dates: start: 20080601
  2. ENBREL [Suspect]
     Indication: RHEUMATOID ARTHRITIS
     Dates: start: 20080601
  3. DICLOFENAC [Concomitant]
     Dosage: DOSE: UNK
  4. ACETAMINOPHEN W/ CODEINE [Concomitant]
  5. ALENDRONIC ACID [Concomitant]
     Dosage: DOSE: UNK
  6. ALBUTEROL [Concomitant]
     Dosage: DOSE: UNK
     Route: 055
  7. IPRATROPIUM INHALER [Concomitant]
     Dosage: DOSE: UNK
     Route: 055

REACTIONS (2)
  - BLOOD CREATININE INCREASED [None]
  - TUBULOINTERSTITIAL NEPHRITIS [None]
